FAERS Safety Report 16700435 (Version 1)
Quarter: 2019Q3

REPORT INFORMATION
  Report Type: Spontaneous
  Country: IT (occurrence: IT)
  Receive Date: 20190814
  Receipt Date: 20190814
  Transmission Date: 20191004
  Serious: Yes (Hospitalization)
  Sender: FDA-Public Use
  Company Number: IT-TEVA-2019-IT-1090672

PATIENT
  Age: 78 Year
  Sex: Female

DRUGS (3)
  1. PANTOPRAZOLE [Interacting]
     Active Substance: PANTOPRAZOLE
     Route: 065
  2. WARFARIN [Interacting]
     Active Substance: WARFARIN
     Indication: ATRIAL FIBRILLATION
     Route: 048
  3. ALLOPURINOL. [Suspect]
     Active Substance: ALLOPURINOL
     Route: 065

REACTIONS (8)
  - Labelled drug-drug interaction medication error [Unknown]
  - Gastrointestinal haemorrhage [Recovering/Resolving]
  - Asthenia [Recovering/Resolving]
  - Anaemia [Recovering/Resolving]
  - Melaena [Recovering/Resolving]
  - Contraindicated product administered [Unknown]
  - Product prescribing issue [Unknown]
  - Coagulation test abnormal [Recovering/Resolving]
